FAERS Safety Report 10100004 (Version 2)
Quarter: 2014Q2

REPORT INFORMATION
  Report Type: Report from Study
  Country: US (occurrence: US)
  Receive Date: 20140423
  Receipt Date: 20140516
  Transmission Date: 20141212
  Serious: Yes (Congenital Anomaly, Other)
  Sender: FDA-Public Use
  Company Number: US-JNJFOC-20140411643

PATIENT
  Sex: Male
  Weight: 3.12 kg

DRUGS (4)
  1. PREZISTA [Suspect]
     Indication: HIV INFECTION
     Route: 064
  2. EPZICOM [Suspect]
     Indication: HIV INFECTION
     Route: 064
  3. ISENTRESS [Suspect]
     Indication: HIV INFECTION
     Route: 064
  4. NORVIR [Suspect]
     Indication: HIV INFECTION
     Route: 064

REACTIONS (2)
  - Cerebral ventricle dilatation [Recovered/Resolved]
  - Foetal exposure during pregnancy [Recovered/Resolved]
